FAERS Safety Report 10202367 (Version 2)
Quarter: 2014Q2

REPORT INFORMATION
  Report Type: Report from Study
  Country: US (occurrence: US)
  Receive Date: 20140528
  Receipt Date: 20140528
  Transmission Date: 20141212
  Serious: Yes (Other)
  Sender: FDA-Public Use
  Company Number: US-SA-2013SA106363

PATIENT
  Age: 56 Year
  Sex: Female

DRUGS (3)
  1. AUBAGIO [Suspect]
     Indication: MULTIPLE SCLEROSIS
     Route: 048
     Dates: start: 20130514
  2. AUBAGIO [Suspect]
     Indication: MULTIPLE SCLEROSIS
     Dosage: START - 5 MONTHS AGO
     Route: 048
  3. ACTONEL [Concomitant]

REACTIONS (5)
  - Abasia [Unknown]
  - Bone density decreased [Unknown]
  - Limb discomfort [Unknown]
  - Gait disturbance [Unknown]
  - Peripheral swelling [Unknown]
